FAERS Safety Report 7824783-3 (Version None)
Quarter: 2011Q4

REPORT INFORMATION
  Report Type: 
  Country: None (occurrence: None)
  Receive Date: 20111019
  Receipt Date: 20110120
  Transmission Date: 20120403
  Serious: No
  Sender: FDA-Public Use
  Company Number: US-BRISTOL-MYERS SQUIBB COMPANY-15500911

PATIENT
  Age: 6 Decade
  Sex: Female

DRUGS (1)
  1. AVALIDE [Suspect]
     Indication: HYPERTENSION
     Dosage: SINCE 1999/2000,1 DF =150/12.5MG DAILY,RECENTLY TAKING 300/25 MG.
     Dates: start: 19990101

REACTIONS (1)
  - DIZZINESS [None]
